FAERS Safety Report 4337571-X (Version None)
Quarter: 2004Q2

REPORT INFORMATION
  Report Type: 
  Country: None (occurrence: None)
  Receive Date: 20040413
  Receipt Date: 20031205
  Transmission Date: 20050107
  Serious: No
  Sender: FDA-Public Use
  Company Number: US-GLAXOSMITHKLINE-A0442189A

PATIENT
  Sex: Male

DRUGS (4)
  1. AGENERASE [Suspect]
     Indication: HIV INFECTION
     Dosage: 8CAP TWICE PER DAY
     Route: 048
  2. EPIVIR [Concomitant]
  3. ZIAGEN [Concomitant]
  4. SUSTIVA [Concomitant]

REACTIONS (2)
  - HYPOAESTHESIA ORAL [None]
  - PARAESTHESIA ORAL [None]
